FAERS Safety Report 5725483-6 (Version None)
Quarter: 2008Q2

REPORT INFORMATION
  Report Type: 
  Country: None (occurrence: None)
  Receive Date: 20080501
  Receipt Date: 20080422
  Transmission Date: 20081010
  Serious: Yes (Hospitalization)
  Sender: FDA-Public Use
  Company Number: ES-KINGPHARMUSA00001-K200800441

PATIENT

DRUGS (4)
  1. TAPAZOLE [Suspect]
     Indication: HYPERTHYROIDISM
     Dosage: 15 MG, QD
  2. TAPAZOLE [Suspect]
     Dosage: 10 MG, QD
  3. TAPAZOLE [Suspect]
     Dosage: 5 MG, QD
  4. PROPYLTHIOURACIL [Suspect]
     Indication: HYPERTHYROIDISM

REACTIONS (3)
  - ASTHENIA [None]
  - MYALGIA [None]
  - RHABDOMYOLYSIS [None]
